FAERS Safety Report 5530060-6 (Version None)
Quarter: 2007Q4

REPORT INFORMATION
  Report Type: 
  Country: None (occurrence: None)
  Receive Date: 20071119
  Receipt Date: 20071009
  Transmission Date: 20080405
  Serious: No
  Sender: FDA-Public Use
  Company Number: TPA2007A02070

PATIENT
  Age: 34 Year
  Sex: Female
  Weight: 83.9154 kg

DRUGS (9)
  1. ROZEREM [Suspect]
     Indication: INSOMNIA
     Dosage: 1 - 2 TABS, QHS, PER ORAL
     Route: 048
     Dates: start: 20051009
  2. LAMICTAL [Concomitant]
  3. PROPRANOLOL [Concomitant]
  4. CRESTOR [Concomitant]
  5. TRICOR [Concomitant]
  6. ZANAFLEX [Concomitant]
  7. CLONAZEPAM [Concomitant]
  8. CYMBALTA [Concomitant]
  9. THYROID TAB [Concomitant]

REACTIONS (2)
  - INFERTILITY FEMALE [None]
  - OVERDOSE [None]
